FAERS Safety Report 9125008 (Version 1)
Quarter: 2013Q1

REPORT INFORMATION
  Report Type: Spontaneous
  Country: IN (occurrence: IN)
  Receive Date: 20130227
  Receipt Date: 20130227
  Transmission Date: 20140127
  Serious: Yes (Death, Other)
  Sender: FDA-Public Use
  Company Number: IN-009507513-1302IND011402

PATIENT
  Age: 50 Year
  Sex: 0

DRUGS (2)
  1. JANUMET [Suspect]
     Indication: DIABETES MELLITUS
     Dosage: UNK, QD
     Route: 048
     Dates: start: 20120324
  2. MODLIP [Concomitant]

REACTIONS (2)
  - Cerebrovascular accident [Fatal]
  - Inappropriate schedule of drug administration [Unknown]
